FAERS Safety Report 15827830 (Version 5)
Quarter: 2022Q1

REPORT INFORMATION
  Report Type: Spontaneous
  Country: SK (occurrence: SK)
  Receive Date: 20190115
  Receipt Date: 20220311
  Transmission Date: 20220424
  Serious: Yes (Other)
  Sender: FDA-Public Use
  Company Number: PHHY2019SK005475

PATIENT
  Age: 44 Year
  Sex: Female
  Weight: 94 kg

DRUGS (2)
  1. CYCLOSPORINE [Suspect]
     Active Substance: CYCLOSPORINE
     Indication: Psoriasis
     Dosage: 200 MG
     Route: 065
     Dates: start: 2015
  2. METHOTREXATE [Suspect]
     Active Substance: METHOTREXATE
     Indication: Product used for unknown indication
     Dosage: UNK
     Route: 065

REACTIONS (5)
  - Creatinine renal clearance [Unknown]
  - Basal cell carcinoma [Unknown]
  - Hypertension [Unknown]
  - Gastrointestinal disorder [Unknown]
  - Liver function test increased [Unknown]
